FAERS Safety Report 8996345 (Version 1)
Quarter: 2013Q1

REPORT INFORMATION
  Report Type: Spontaneous
  Country: US (occurrence: US)
  Receive Date: 20130104
  Receipt Date: 20130104
  Transmission Date: 20140127
  Serious: No
  Sender: FDA-Public Use
  Company Number: US-009507513-1301USA000176

PATIENT
  Sex: Male

DRUGS (3)
  1. PEGINTRON [Suspect]
  2. RIBAVIRIN [Suspect]
  3. VICTRELIS [Suspect]

REACTIONS (1)
  - Adverse drug reaction [Unknown]
